FAERS Safety Report 6000160-5 (Version None)
Quarter: 2008Q4

REPORT INFORMATION
  Report Type: 
  Country: None (occurrence: None)
  Receive Date: 20081215
  Receipt Date: 20081208
  Transmission Date: 20090506
  Serious: No
  Sender: FDA-Public Use
  Company Number: US-JNJFOC-20081202368

PATIENT
  Sex: Female
  Weight: 68.04 kg

DRUGS (3)
  1. FENTANYL TRANSDERMAL SYSTEM [Suspect]
     Indication: HEADACHE
     Route: 062
  2. FENTANYL TRANSDERMAL SYSTEM [Suspect]
     Indication: BONE PAIN
     Route: 062
  3. ACTIQ [Concomitant]
     Indication: PAIN
     Dosage: ORAL TRANSMUCOSAL

REACTIONS (2)
  - DEVICE LEAKAGE [None]
  - WRONG TECHNIQUE IN DRUG USAGE PROCESS [None]
